FAERS Safety Report 9705959 (Version 2)
Quarter: 2014Q1

REPORT INFORMATION
  Report Type: Spontaneous
  Country: US (occurrence: US)
  Receive Date: 20131122
  Receipt Date: 20140214
  Transmission Date: 20141002
  Serious: Yes (Hospitalization, Congenital Anomaly, Other)
  Sender: FDA-Public Use
  Company Number: US-GLAXOSMITHKLINE-A1050482B

PATIENT
  Age: 0 Year
  Sex: Male

DRUGS (1)
  1. AVODART [Suspect]
     Indication: ILL-DEFINED DISORDER
     Route: 064

REACTIONS (8)
  - Congenital genitourinary abnormality [Not Recovered/Not Resolved]
  - Hypospadias [Unknown]
  - Urethral repair [Unknown]
  - Growth retardation [Not Recovered/Not Resolved]
  - Developmental delay [Not Recovered/Not Resolved]
  - Gastrooesophageal reflux disease [Unknown]
  - Premature baby [Unknown]
  - Foetal exposure during pregnancy [Unknown]
